FAERS Safety Report 18358333 (Version 1)
Quarter: 2020Q4

REPORT INFORMATION
  Report Type: Report from Study
  Country: None (occurrence: US)
  Receive Date: 20201008
  Receipt Date: 20201008
  Transmission Date: 20210114
  Serious: Yes (Other)
  Sender: FDA-Public Use
  Company Number: US-ABBVIE-20K-163-3594497-00

PATIENT
  Age: 57 Year
  Sex: Female

DRUGS (1)
  1. HUMIRA [Suspect]
     Active Substance: ADALIMUMAB
     Indication: RHEUMATOID ARTHRITIS
     Dosage: CITRATE FREE
     Route: 058

REACTIONS (9)
  - Unevaluable event [Unknown]
  - Fructose intolerance [Unknown]
  - Pulmonary mass [Unknown]
  - Diarrhoea [Not Recovered/Not Resolved]
  - Gastrointestinal wall thickening [Unknown]
  - Fatigue [Unknown]
  - Aortic aneurysm [Unknown]
  - Weight decreased [Unknown]
  - Nausea [Not Recovered/Not Resolved]

NARRATIVE: CASE EVENT DATE: 201912
